FAERS Safety Report 13087889 (Version 1)
Quarter: 2017Q1

REPORT INFORMATION
  Report Type: Spontaneous
  Country: US (occurrence: US)
  Receive Date: 20170104
  Receipt Date: 20170104
  Transmission Date: 20170428
  Serious: Yes (Hospitalization)
  Sender: FDA-Public Use
  Company Number: None

PATIENT
  Age: 55 Year
  Sex: Female
  Weight: 59.5 kg

DRUGS (14)
  1. COLACE [Concomitant]
     Active Substance: DOCUSATE SODIUM
  2. DILAUDID [Concomitant]
     Active Substance: HYDROMORPHONE HYDROCHLORIDE
  3. ATIVAN [Concomitant]
     Active Substance: LORAZEPAM
  4. PEMBROLIZUMAB 200MG MERCK RESEARCH LAB [Suspect]
     Active Substance: PEMBROLIZUMAB
     Indication: METASTASES TO MENINGES
     Route: 042
     Dates: start: 20161229
  5. DURAGESIC [Concomitant]
     Active Substance: FENTANYL
  6. COMPAZINE [Concomitant]
     Active Substance: PROCHLORPERAZINE MALEATE
  7. DECADRON [Concomitant]
     Active Substance: DEXAMETHASONE
  8. TYLENOL [Concomitant]
     Active Substance: ACETAMINOPHEN
  9. SENOKOT [Concomitant]
     Active Substance: SENNOSIDES
  10. NEURONTIN [Concomitant]
     Active Substance: GABAPENTIN
  11. KEPPRA [Concomitant]
     Active Substance: LEVETIRACETAM
  12. BACILLUS COAGULANS-INSULIN [Concomitant]
  13. LIDODERM [Concomitant]
     Active Substance: LIDOCAINE
  14. ZOFRAN [Concomitant]
     Active Substance: ONDANSETRON HYDROCHLORIDE

REACTIONS (7)
  - Muscle twitching [None]
  - Confusional state [None]
  - Nausea [None]
  - Vomiting [None]
  - Headache [None]
  - Diplopia [None]
  - Seizure [None]

NARRATIVE: CASE EVENT DATE: 20161229
